FAERS Safety Report 21677633 (Version 13)
Quarter: 2024Q2

REPORT INFORMATION
  Report Type: Spontaneous
  Country: CA (occurrence: CA)
  Receive Date: 20221203
  Receipt Date: 20240425
  Transmission Date: 20240715
  Serious: Yes (Hospitalization, Other)
  Sender: FDA-Public Use
  Company Number: CA-CELLTRION INC.-2022CA005434

PATIENT

DRUGS (11)
  1. INFLECTRA [Suspect]
     Active Substance: INFLIXIMAB-DYYB
     Indication: Crohn^s disease
     Dosage: 700 MG, EVERY 5 WEEKS
     Route: 042
     Dates: start: 20220412
  2. INFLECTRA [Suspect]
     Active Substance: INFLIXIMAB-DYYB
     Dosage: 700 MG, EVERY 5 WEEKS
     Route: 042
     Dates: start: 20220830
  3. INFLECTRA [Suspect]
     Active Substance: INFLIXIMAB-DYYB
     Dosage: 700 MG, EVERY 5 WEEKS
     Route: 042
     Dates: start: 20221004
  4. INFLECTRA [Suspect]
     Active Substance: INFLIXIMAB-DYYB
     Dosage: 700 MG, AFTER 7 WEEKS AND 1 DAY (PRESCRIBED WAS EVERY 5 WEEKS)
     Route: 042
     Dates: start: 20221123
  5. INFLECTRA [Suspect]
     Active Substance: INFLIXIMAB-DYYB
     Dosage: 700 MG, EVERY 5 WEEKS
     Route: 042
     Dates: start: 20230208
  6. INFLECTRA [Suspect]
     Active Substance: INFLIXIMAB-DYYB
     Dosage: 700 MG, EVERY 5 WEEKS
     Route: 042
     Dates: start: 20230315
  7. INFLECTRA [Suspect]
     Active Substance: INFLIXIMAB-DYYB
     Dosage: 700 MG, EVERY 5 WEEKS
     Route: 042
     Dates: start: 20230419
  8. INFLECTRA [Suspect]
     Active Substance: INFLIXIMAB-DYYB
     Dosage: 700 MG, EVERY 5 WEEKS
     Route: 042
  9. INFLECTRA [Suspect]
     Active Substance: INFLIXIMAB-DYYB
     Dosage: 700 MG, EVERY 5 WEEKS
     Route: 042
     Dates: start: 20231227
  10. INFLECTRA [Suspect]
     Active Substance: INFLIXIMAB-DYYB
     Dosage: 700 MG, EVERY 5 WEEKS
     Route: 042
     Dates: start: 20231227
  11. INFLECTRA [Suspect]
     Active Substance: INFLIXIMAB-DYYB
     Dosage: 700 MG, EVERY 5 WEEKS
     Route: 042
     Dates: start: 20240219

REACTIONS (15)
  - Rash [Unknown]
  - Stomatitis [Unknown]
  - Testicular swelling [Unknown]
  - Omphalitis [Recovered/Resolved]
  - Abdominal wall cyst [Recovering/Resolving]
  - Skin lesion [Recovering/Resolving]
  - Mucosal disorder [Unknown]
  - Dry skin [Unknown]
  - Pruritus [Unknown]
  - Umbilical discharge [Unknown]
  - Erythema [Recovered/Resolved]
  - Swelling [Recovering/Resolving]
  - Discharge [Not Recovered/Not Resolved]
  - Off label use [Unknown]
  - Inappropriate schedule of product administration [Unknown]

NARRATIVE: CASE EVENT DATE: 20220412
